FAERS Safety Report 9503267 (Version 1)
Quarter: 2013Q1

REPORT INFORMATION
  Report Type: Spontaneous
  Country: US (occurrence: None)
  Receive Date: 20130225
  Receipt Date: 20130225
  Transmission Date: 20140127
  Serious: No
  Sender: FDA-Public Use
  Company Number: 365846

PATIENT
  Sex: Female

DRUGS (4)
  1. VICTOZA [Suspect]
     Indication: PRODUCT USED FOR UNKNOWN INDICATION
     Route: 058
  2. NOVOLIN 70/30 (INSULIN HUMAN) SUSPENSION FOR INJECTION, 100IU/ML [Concomitant]
     Route: 058
  3. JANUVIA (SITAGLIPTIN PHOSPHATE) [Concomitant]
  4. METFORMIN (METFORMIN) [Concomitant]

REACTIONS (1)
  - Blood glucose fluctuation [None]
